FAERS Safety Report 4968613-6 (Version None)
Quarter: 2006Q2

REPORT INFORMATION
  Report Type: 
  Country: None (occurrence: None)
  Receive Date: 20060405
  Receipt Date: 20060323
  Transmission Date: 20061013
  Serious: Yes (Hospitalization)
  Sender: FDA-Public Use
  Company Number: 222025

PATIENT
  Age: 64 Year
  Sex: Female

DRUGS (3)
  1. MABTHERA (RITUXIMAB)CONC FOR SOLUTION FOR INFUSION [Suspect]
     Indication: RHEUMATOID ARTHRITIS
     Dosage: 10000 MG, INTRAVENOUS
     Route: 042
     Dates: start: 20060131
  2. PRODAFALGAN (PROPACETAMOL) [Concomitant]
  3. ANTIHISTAMINE NOS (ANTIHISTAMINE NOS) [Concomitant]

REACTIONS (6)
  - ASPARTATE AMINOTRANSFERASE INCREASED [None]
  - INFLAMMATION [None]
  - INFUSION RELATED REACTION [None]
  - PRURITUS [None]
  - RASH ERYTHEMATOUS [None]
  - RASH MACULAR [None]
